FAERS Safety Report 5905831-4 (Version None)
Quarter: 2008Q4

REPORT INFORMATION
  Report Type: 
  Country: None (occurrence: None)
  Receive Date: 20081002
  Receipt Date: 20080926
  Transmission Date: 20090506
  Serious: Yes (Congenital Anomaly)
  Sender: FDA-Public Use
  Company Number: JP-ASTRAZENECA-2008AP07196

PATIENT
  Sex: Female
  Weight: 2 kg

DRUGS (4)
  1. PULMICORT-100 [Suspect]
     Route: 064
     Dates: start: 20080325, end: 20080807
  2. PULMICORT-100 [Suspect]
     Route: 064
     Dates: start: 20080808
  3. SEREVENT [Concomitant]
     Route: 064
     Dates: start: 20080418
  4. MEPTIN [Concomitant]
     Dosage: DOSE UNKNOWN
     Route: 064

REACTIONS (1)
  - CLEFT PALATE [None]
